FAERS Safety Report 10466107 (Version 2)
Quarter: 2014Q4

REPORT INFORMATION
  Report Type: Report from Study
  Country: NL (occurrence: NL)
  Receive Date: 20140922
  Receipt Date: 20141117
  Transmission Date: 20150528
  Serious: Yes (Hospitalization)
  Sender: FDA-Public Use
  Company Number: NL-ROCHE-1462411

PATIENT
  Age: 59 Year
  Sex: Female
  Weight: 53 kg

DRUGS (9)
  1. METHOTREXATE [Suspect]
     Active Substance: METHOTREXATE
     Indication: MALIGNANT LYMPHOID NEOPLASM
     Dosage: LASR DOSE TAKEN ON 02/SEP/2014
     Route: 042
     Dates: start: 20140902
  2. CARMUSTINE [Suspect]
     Active Substance: CARMUSTINE
     Indication: MALIGNANT LYMPHOID NEOPLASM
     Dosage: SINGLE DOSE ON 05/SEP/2014
     Route: 042
  3. COTRIMOXAZOLE [Concomitant]
     Active Substance: SULFAMETHOXAZOLE\TRIMETHOPRIM
     Indication: PROPHYLAXIS
     Dosage: 1 DD 480 MG, LAST DOSE TAKEN ON 11/SEP/2014
     Route: 048
     Dates: start: 20140904
  4. VALACICLOVIR [Concomitant]
     Active Substance: VALACYCLOVIR HYDROCHLORIDE
     Indication: PROPHYLAXIS
     Dosage: 2 DD 500 MG, LAST DOSE TAKEN ON 15/SEP/2014
     Route: 048
     Dates: start: 20140901
  5. RITUXIMAB [Suspect]
     Active Substance: RITUXIMAB
     Indication: MALIGNANT LYMPHOID NEOPLASM
     Dosage: DATE OF LAST DOSE: 08/SEP/2014
     Route: 042
     Dates: start: 20140901
  6. TENIPOSIDE. [Suspect]
     Active Substance: TENIPOSIDE
     Indication: MALIGNANT LYMPHOID NEOPLASM
     Dosage: DATE OF LAST DOSE: 04/SEP/2014
     Route: 065
     Dates: start: 20140903
  7. PREDNISOLONE. [Suspect]
     Active Substance: PREDNISOLONE
     Indication: MALIGNANT LYMPHOID NEOPLASM
     Dosage: DATE OF LAST DOSE: 05/SEP/2014
     Route: 048
     Dates: start: 20140902
  8. DEXAMETHASONE. [Concomitant]
     Active Substance: DEXAMETHASONE
     Indication: NEUROLOGICAL SYMPTOM
     Dosage: 2 DD 4 MG, LAST DOSE TAKEN ON 15/SEP/2014
     Route: 048
     Dates: start: 20140821
  9. FLUCONAZOLE. [Concomitant]
     Active Substance: FLUCONAZOLE
     Indication: PROPHYLAXIS
     Dosage: 1 DD 400 MG, DATE OF LAST DOSE: 15/SEP/2014
     Route: 048
     Dates: start: 20140901

REACTIONS (1)
  - Mucosal inflammation [Recovered/Resolved]

NARRATIVE: CASE EVENT DATE: 20140908
